FAERS Safety Report 23931442 (Version 3)
Quarter: 2024Q3

REPORT INFORMATION
  Report Type: Report from Study
  Country: CA (occurrence: CA)
  Receive Date: 20240603
  Receipt Date: 20240820
  Transmission Date: 20241016
  Serious: Yes (Hospitalization, Other)
  Sender: ROCHE
  Company Number: CA-ROCHE-3568775

PATIENT
  Sex: Female

DRUGS (1)
  1. OCREVUS [Suspect]
     Active Substance: OCRELIZUMAB
     Indication: Relapsing-remitting multiple sclerosis
     Dosage: 300 MG AT DAY 0 AND 14, THEN 600 MG EVERY 6 MONTHS
     Route: 042
     Dates: start: 20221109

REACTIONS (9)
  - Tubo-ovarian abscess [Not Recovered/Not Resolved]
  - Ascites [Not Recovered/Not Resolved]
  - Bladder disorder [Not Recovered/Not Resolved]
  - Abscess [Unknown]
  - Gait disturbance [Not Recovered/Not Resolved]
  - Ill-defined disorder [Unknown]
  - Swelling [Unknown]
  - Gastrointestinal disorder [Not Recovered/Not Resolved]
  - Bacterial infection [Not Recovered/Not Resolved]
